FAERS Safety Report 6589819-9 (Version None)
Quarter: 2010Q1

REPORT INFORMATION
  Report Type: 
  Country: None (occurrence: None)
  Receive Date: 20100219
  Receipt Date: 20100202
  Transmission Date: 20100710
  Serious: No
  Sender: FDA-Public Use
  Company Number: US-JNJFOC-20100202509

PATIENT
  Sex: Female
  Weight: 63.5 kg

DRUGS (8)
  1. DURAGESIC-100 [Suspect]
     Indication: NECK PAIN
     Route: 062
  2. DURAGESIC-100 [Suspect]
     Route: 062
  3. BACLOFEN [Concomitant]
     Indication: MUSCLE SPASMS
     Route: 048
  4. SINEMET [Concomitant]
     Indication: PARKINSON'S DISEASE
     Dosage: 50/ 200 MG
     Route: 048
  5. NEURONTIN [Concomitant]
     Indication: EPILEPSY
     Route: 048
  6. ARTANE [Concomitant]
     Indication: TREMOR
     Route: 048
  7. VALIUM [Concomitant]
     Indication: CONVULSION
     Route: 048
  8. HUMAN INSULIN [Concomitant]
     Indication: DIABETES MELLITUS
     Dosage: VARIE 4 TIMES A DAY/ 100 UNITS/ML/4UM AS A DAY
     Route: 058

REACTIONS (4)
  - HEADACHE [None]
  - MUSCLE SPASMS [None]
  - WITHDRAWAL SYNDROME [None]
  - WRONG TECHNIQUE IN DRUG USAGE PROCESS [None]
